FAERS Safety Report 9921742 (Version 1)
Quarter: 2014Q1

REPORT INFORMATION
  Report Type: Spontaneous
  Country: US (occurrence: None)
  Receive Date: 20140221
  Receipt Date: 20140221
  Transmission Date: 20141002
  Serious: Yes (Death)
  Sender: FDA-Public Use
  Company Number: None

PATIENT
  Sex: Male

DRUGS (9)
  1. CLOBAZAM [Suspect]
     Indication: EPILEPSY
     Route: 048
     Dates: start: 20130117, end: 20130328
  2. IC BUSPIRONE HCL [Concomitant]
  3. ZYPREXA [Concomitant]
  4. CYMBALTA [Concomitant]
  5. VIMPAT [Concomitant]
  6. TOPAMAX [Concomitant]
  7. INSULIN LEVEMIR [Concomitant]
  8. D3 [Concomitant]
  9. DEPLIN [Concomitant]

REACTIONS (1)
  - Cardio-respiratory arrest [None]
